FAERS Safety Report 11321077 (Version 1)
Quarter: 2015Q3

REPORT INFORMATION
  Report Type: Spontaneous
  Country: US (occurrence: US)
  Receive Date: 20150729
  Receipt Date: 20150729
  Transmission Date: 20151125
  Serious: Yes (Other)
  Sender: FDA-Public Use
  Company Number: US-IPSEN BIOPHARMACEUTICALS, INC.-2015-6503

PATIENT
  Age: 57 Year
  Sex: Female

DRUGS (2)
  1. HEMP OIL [Concomitant]
     Active Substance: CANNABIS SATIVA SEED OIL
     Indication: PRODUCT USED FOR UNKNOWN INDICATION
     Dosage: NOT REPORTED
     Route: 065
     Dates: start: 2014
  2. SOMATULINE DEPOT [Suspect]
     Active Substance: LANREOTIDE ACETATE
     Indication: CARCINOID TUMOUR
     Dosage: 120 MG
     Route: 065
     Dates: start: 2015

REACTIONS (8)
  - Blood pressure increased [Unknown]
  - Anxiety [Unknown]
  - Injection site mass [Recovering/Resolving]
  - Drug administration error [Unknown]
  - Heart rate increased [Unknown]
  - Terminal state [Unknown]
  - Angina pectoris [Unknown]
  - Heart rate decreased [Unknown]

NARRATIVE: CASE EVENT DATE: 2015
